FAERS Safety Report 8835516 (Version 4)
Quarter: 2015Q4

REPORT INFORMATION
  Report Type: Spontaneous
  Country: US (occurrence: US)
  Receive Date: 20121011
  Receipt Date: 20151026
  Transmission Date: 20160305
  Serious: Yes (Hospitalization, Disabling, Other)
  Sender: FDA-Public Use
  Company Number: US-009507513-1210USA003184

PATIENT
  Sex: Female

DRUGS (2)
  1. FOSAMAX [Suspect]
     Active Substance: ALENDRONATE SODIUM
     Indication: OSTEOPENIA
     Dosage: 10 MG, QD
     Route: 048
     Dates: start: 20010807, end: 200709
  2. FOSAMAX [Suspect]
     Active Substance: ALENDRONATE SODIUM
     Indication: OSTEOPOROSIS
     Dosage: 70 MG, QW
     Route: 048
     Dates: start: 20040803, end: 20070531

REACTIONS (22)
  - Intramedullary rod insertion [Unknown]
  - Femur fracture [Not Recovered/Not Resolved]
  - Cataract [Unknown]
  - Gastrooesophageal reflux disease [Unknown]
  - Blood cholesterol increased [Unknown]
  - Delayed recovery from anaesthesia [Recovered/Resolved]
  - Herpes zoster [Unknown]
  - Glaucoma [Unknown]
  - Low turnover osteopathy [Not Recovered/Not Resolved]
  - Rheumatoid arthritis [Unknown]
  - Polymyalgia rheumatica [Unknown]
  - Cardiac disorder [Unknown]
  - Femur fracture [Not Recovered/Not Resolved]
  - Anxiety [Unknown]
  - Post herpetic neuralgia [Unknown]
  - Joint range of motion decreased [Unknown]
  - Osteoporosis [Not Recovered/Not Resolved]
  - Fall [Unknown]
  - Multiple fractures [Not Recovered/Not Resolved]
  - Osteoarthritis [Unknown]
  - Rotator cuff syndrome [Unknown]
  - Joint swelling [Unknown]

NARRATIVE: CASE EVENT DATE: 20020916
